FAERS Safety Report 20799091 (Version 1)
Quarter: 2022Q2

REPORT INFORMATION
  Report Type: Spontaneous
  Country: DE (occurrence: DE)
  Receive Date: 20220508
  Receipt Date: 20220508
  Transmission Date: 20220721
  Serious: Yes (Other)
  Sender: FDA-Public Use
  Company Number: DE-BRISTOL-MYERS SQUIBB COMPANY-2022-032986

PATIENT
  Age: 9 Decade
  Sex: Female

DRUGS (2)
  1. ELIQUIS [Suspect]
     Active Substance: APIXABAN
     Indication: Atrial fibrillation
     Route: 065
  2. ELIQUIS [Suspect]
     Active Substance: APIXABAN
     Route: 065

REACTIONS (2)
  - Intestinal haemorrhage [Recovered/Resolved]
  - Haemorrhoids [Unknown]
